FAERS Safety Report 8601360-8 (Version None)
Quarter: 2012Q3

REPORT INFORMATION
  Report Type: 
  Country: None (occurrence: None)
  Receive Date: 20120814
  Receipt Date: 20120731
  Transmission Date: 20120928
  Serious: Yes (Other)
  Sender: FDA-Public Use
  Company Number: CHPA2012US017291

PATIENT
  Age: 66 Year
  Sex: Female

DRUGS (4)
  1. BENEFIBER W/ WHEAT DEXTRIN [Suspect]
     Indication: BOWEL MOVEMENT IRREGULARITY
     Dosage: 2 TSP, QD
     Route: 048
     Dates: start: 20120201, end: 20120601
  2. BENEFIBER ORANGE POWDER [Suspect]
     Indication: BOWEL MOVEMENT IRREGULARITY
     Dosage: 2 TSP, QD
     Dates: start: 20120701, end: 20120729
  3. BENEFIBER STICK PACKS [Suspect]
     Indication: BOWEL MOVEMENT IRREGULARITY
     Dosage: 1 PACK PER DAY
     Route: 048
     Dates: start: 20120101, end: 20120201
  4. FISH OIL [Concomitant]

REACTIONS (6)
  - THERAPEUTIC RESPONSE UNEXPECTED [None]
  - DERMATITIS CONTACT [None]
  - URTICARIA [None]
  - SKIN EXFOLIATION [None]
  - OFF LABEL USE [None]
  - FLATULENCE [None]
